FAERS Safety Report 5715719-X (Version None)
Quarter: 2008Q2

REPORT INFORMATION
  Report Type: 
  Country: None (occurrence: None)
  Receive Date: 20080422
  Receipt Date: 20080409
  Transmission Date: 20081010
  Serious: Yes (Hospitalization)
  Sender: FDA-Public Use
  Company Number: IL-JNJFOC-20080206304

PATIENT
  Age: 76 Year
  Sex: Female

DRUGS (6)
  1. DECITABINE (DECITABINE) LYOPHILIZED POWDER [Suspect]
     Indication: MYELODYSPLASTIC SYNDROME
     Dosage: 30 MG, INTRAVENOUS; 30 MG, INTRAVENOUS
     Route: 042
     Dates: start: 20080106, end: 20080110
  2. DECITABINE (DECITABINE) LYOPHILIZED POWDER [Suspect]
     Indication: MYELODYSPLASTIC SYNDROME
     Dosage: 30 MG, INTRAVENOUS; 30 MG, INTRAVENOUS
     Route: 042
     Dates: start: 20080203, end: 20080207
  3. LOSEC (OMEPRAZOLE) UNSPECIFIED [Concomitant]
  4. FOSALAN (ALENDRONATE SODIUM) UNSPECIFIED [Concomitant]
  5. COLCHICINE (COLCHICINE) UNSPECIFIED [Concomitant]
  6. COUMADIN [Concomitant]

REACTIONS (6)
  - ASTHMA [None]
  - DYSPNOEA [None]
  - HAEMOGLOBIN DECREASED [None]
  - NERVOUS SYSTEM DISORDER [None]
  - STRIDOR [None]
  - VOCAL CORD DISORDER [None]
